FAERS Safety Report 16920038 (Version 3)
Quarter: 2019Q4

REPORT INFORMATION
  Report Type: Spontaneous
  Country: US (occurrence: US)
  Receive Date: 20191015
  Receipt Date: 20191128
  Transmission Date: 20200122
  Serious: No
  Sender: FDA-Public Use
  Company Number: US-BAUSCH-BL-2019-025438

PATIENT
  Age: 40 Year
  Sex: Female
  Weight: 116.22 kg

DRUGS (2)
  1. ALAWAY [Suspect]
     Active Substance: KETOTIFEN FUMARATE
     Indication: DRY EYE
     Dosage: IN THE PAST
     Route: 047
  2. ALAWAY [Suspect]
     Active Substance: KETOTIFEN FUMARATE
     Indication: EYE PRURITUS
     Dosage: STOPPED: APPROXIMATELY (02/SEP/2019)?AS DIRECTED: APPROXIMATELY 1 TO 2 TIMES DAILY
     Route: 047
     Dates: start: 20190901, end: 201909

REACTIONS (3)
  - Product quality issue [Unknown]
  - Eye pain [Recovered/Resolved]
  - Eye irritation [Recovered/Resolved]

NARRATIVE: CASE EVENT DATE: 201909
